FAERS Safety Report 19762648 (Version 1)
Quarter: 2021Q3

REPORT INFORMATION
  Report Type: Spontaneous
  Country: US (occurrence: US)
  Receive Date: 20210825
  Receipt Date: 20210825
  Transmission Date: 20211014
  Serious: Yes (Death)
  Sender: FDA-Public Use
  Company Number: None

PATIENT
  Age: 86 Year
  Sex: Male

DRUGS (17)
  1. REPATHA [Suspect]
     Active Substance: EVOLOCUMAB
     Indication: HYPERLIPIDAEMIA
     Route: 058
     Dates: start: 20200612, end: 20210822
  2. RANEXA [Concomitant]
     Active Substance: RANOLAZINE
  3. BETAMETH VAL CRE [Concomitant]
  4. BRILINTA [Concomitant]
     Active Substance: TICAGRELOR
  5. FOLIC ACID. [Concomitant]
     Active Substance: FOLIC ACID
  6. LOSARTAN POT [Concomitant]
     Active Substance: LOSARTAN POTASSIUM
  7. NOVOLOG MIX 70/30 [Concomitant]
     Active Substance: INSULIN ASPART
  8. PRANDIN [Concomitant]
     Active Substance: REPAGLINIDE
  9. ASPIRIN 81MG EC [Concomitant]
  10. COENZYME Q10 [Concomitant]
     Active Substance: DIETARY SUPPLEMENT\UBIDECARENONE
  11. FLEXERIL [Concomitant]
     Active Substance: CYCLOBENZAPRINE HYDROCHLORIDE
  12. NITROGLYCERN SUB [Concomitant]
  13. VITAMIN C [Concomitant]
     Active Substance: ASCORBIC ACID
  14. ACEBUTOLOL [Concomitant]
     Active Substance: ACEBUTOLOL
  15. CRESTOR [Concomitant]
     Active Substance: ROSUVASTATIN CALCIUM
  16. PLETAL [Concomitant]
     Active Substance: CILOSTAZOL
  17. NORVASC [Concomitant]
     Active Substance: AMLODIPINE BESYLATE

REACTIONS (1)
  - Death [None]

NARRATIVE: CASE EVENT DATE: 20210822
